FAERS Safety Report 5875154-0 (Version None)
Quarter: 2008Q3

REPORT INFORMATION
  Report Type: 
  Country: None (occurrence: None)
  Receive Date: 20080909
  Receipt Date: 20080902
  Transmission Date: 20090109
  Serious: Yes (Other)
  Sender: FDA-Public Use
  Company Number: US-AMGEN-QUU296257

PATIENT
  Sex: Female
  Weight: 64.5 kg

DRUGS (7)
  1. ENBREL [Suspect]
     Indication: PSORIASIS
     Route: 058
     Dates: start: 20010101
  2. ENBREL [Suspect]
     Indication: RHEUMATOID ARTHRITIS
  3. CORTISOL [Concomitant]
  4. PROGESTERONE [Concomitant]
  5. TRIEST [Concomitant]
  6. WESTHROID [Concomitant]
  7. UNSPECIFIED PAIN MEDICATION [Concomitant]

REACTIONS (5)
  - MYODESOPSIA [None]
  - PHOTOPSIA [None]
  - RETINAL MIGRAINE [None]
  - SPLINTER HAEMORRHAGES [None]
  - VISION BLURRED [None]
